FAERS Safety Report 23923740 (Version 2)
Quarter: 2024Q3

REPORT INFORMATION
  Report Type: Spontaneous
  Country: US (occurrence: US)
  Receive Date: 20240531
  Receipt Date: 20240806
  Transmission Date: 20241017
  Serious: Yes (Hospitalization)
  Sender: NOVARTIS
  Company Number: US-002147023-NVSC2024US109240

PATIENT
  Sex: Female

DRUGS (15)
  1. LETROZOLE [Suspect]
     Active Substance: LETROZOLE
     Indication: Breast cancer metastatic
     Dosage: 2.5 MG, QD
     Route: 065
     Dates: start: 202006
  2. IBRANCE [Suspect]
     Active Substance: PALBOCICLIB
     Indication: Breast cancer metastatic
     Dosage: 125 MG, QD (1 PILL EACH DAY, 3 WEEKS ON AND 1 WEEK OFF)
     Route: 065
     Dates: start: 202007
  3. ZOMETA [Concomitant]
     Active Substance: ZOLEDRONIC ACID
     Indication: Breast cancer metastatic
     Dosage: UNK, EVERY 6 MONTHS
     Route: 065
     Dates: start: 2020
  4. VALSARTAN [Concomitant]
     Active Substance: VALSARTAN
     Indication: Breast cancer metastatic
     Dosage: 80 MG, QD
     Route: 065
     Dates: start: 202311
  5. PANTOPRAZOLE [Concomitant]
     Active Substance: PANTOPRAZOLE
     Indication: Breast cancer metastatic
     Dosage: 40 MG, QD
     Route: 065
     Dates: start: 2022
  6. DESVENLAFAXINE SUCCINATE [Concomitant]
     Active Substance: DESVENLAFAXINE SUCCINATE
     Indication: Breast cancer metastatic
     Dosage: 100 MG, QD
     Route: 065
     Dates: start: 2021
  7. METFORMIN [Concomitant]
     Active Substance: METFORMIN HYDROCHLORIDE
     Indication: Breast cancer metastatic
     Dosage: 1000 MG, BID
     Route: 065
     Dates: start: 2022
  8. ELFOLATE PLUS [Concomitant]
     Indication: Breast cancer metastatic
     Dosage: 15 MG, QD
     Route: 065
     Dates: start: 2018
  9. SINGULAIR [Concomitant]
     Active Substance: MONTELUKAST SODIUM
     Indication: Breast cancer metastatic
     Dosage: 10 MG, QD (FROM MANY YEARS)
     Route: 065
  10. TRAZODONE [Concomitant]
     Active Substance: TRAZODONE HYDROCHLORIDE
     Indication: Breast cancer metastatic
     Dosage: 100 MG, QD (MANY YEARS)
     Route: 065
  11. CHONDROITIN SULFATE (BOVINE)\GLUCOSAMINE HYDROCHLORIDE [Concomitant]
     Active Substance: CHONDROITIN SULFATE (BOVINE)\GLUCOSAMINE HYDROCHLORIDE
     Indication: Breast cancer metastatic
     Dosage: 500 MG, BID
     Route: 065
     Dates: start: 2020
  12. TYLENOL [Concomitant]
     Active Substance: ACETAMINOPHEN
     Indication: Migraine
     Dosage: 100 MG, QD (MANY YEARS)
     Route: 065
  13. TYLENOL [Concomitant]
     Active Substance: ACETAMINOPHEN
     Indication: Breast cancer metastatic
  14. NASONEX [Concomitant]
     Active Substance: MOMETASONE FUROATE
     Indication: Breast cancer metastatic
     Dosage: 2 SPRAY/ PER DAY (MANY YEARS)
     Route: 065
  15. BIOTIN [Concomitant]
     Active Substance: BIOTIN
     Indication: Breast cancer metastatic
     Dosage: 3 MG, BID
     Route: 065
     Dates: start: 2019

REACTIONS (5)
  - Alopecia [Recovered/Resolved]
  - Body temperature fluctuation [Not Recovered/Not Resolved]
  - Fatigue [Unknown]
  - Hot flush [Unknown]
  - Rhinorrhoea [Unknown]

NARRATIVE: CASE EVENT DATE: 20200101
